FAERS Safety Report 21154077 (Version 2)
Quarter: 2022Q3

REPORT INFORMATION
  Report Type: Report from Study
  Country: MX (occurrence: MX)
  Receive Date: 20220801
  Receipt Date: 20220914
  Transmission Date: 20221027
  Serious: Yes (Other)
  Sender: FDA-Public Use
  Company Number: MX-NOVARTISPH-NVSC2022MX172817

PATIENT
  Age: 93 Year
  Sex: Female

DRUGS (10)
  1. GLYCOPYRRONIUM\INDACATEROL [Suspect]
     Active Substance: GLYCOPYRRONIUM\INDACATEROL
     Indication: Antitussive therapy
     Dosage: 1 DOSAGE FORM(ONE DAY YES AND ONE DAY NO) (EVERY THIRD DAY)
     Dates: start: 20220611, end: 202208
  2. GLYCOPYRRONIUM\INDACATEROL [Suspect]
     Active Substance: GLYCOPYRRONIUM\INDACATEROL
     Indication: Cough
     Dosage: 1/1 DF, QD
  3. HYDROCHLOROTHIAZIDE [Concomitant]
     Active Substance: HYDROCHLOROTHIAZIDE
     Indication: Cardiac disorder
     Dosage: 0.5 DOSAGE FORM, QD (BY MOUTH)
     Route: 048
     Dates: start: 202109
  4. HYDROCHLOROTHIAZIDE [Concomitant]
     Active Substance: HYDROCHLOROTHIAZIDE
     Dosage: 0.5 DOSAGE FORM, QD(BETWEEN THE 11-FEB-2022 AND THE 17-FEB-2022)
     Route: 048
  5. DIGOXIN [Concomitant]
     Active Substance: DIGOXIN
     Indication: Cardiac disorder
     Dosage: 0.5 DOSAGE FORM(ON MONDAYS, WEDNESDAYS AND FRIDAYS)
     Route: 048
  6. NITROFURANTOIN [Concomitant]
     Active Substance: NITROFURANTOIN
     Indication: Urinary tract infection
     Dosage: 1 DOSAGE FORM, QD(BEFORE THE ??-???-2009)
     Route: 048
  7. SENSEMOC [Concomitant]
     Indication: Respiratory disorder
     Dosage: 1 DOSAGE FORM, QD (BY MOUTH)
     Route: 048
     Dates: start: 202109
  8. ITRACONAZOLE [Concomitant]
     Active Substance: ITRACONAZOLE
     Indication: Fungal infection
     Dosage: 1 DOSAGE FORM, QD (BY MOUTH)
     Route: 048
     Dates: start: 20211213
  9. VALVULAN [Concomitant]
     Indication: Product used for unknown indication
     Dosage: 0.5 DOSAGE FORM (EVERY THIRD DAY, MONDAY, WEDNESDAY AND FRIDAY (AS REFERRED BY THE REPORTER)), (BY M
     Route: 048
     Dates: start: 202202
  10. LOSARTAN [Concomitant]
     Active Substance: LOSARTAN
     Indication: Hypertension
     Dosage: 1 DOSAGE FORM, QD (IN THE MORNING)
     Route: 048

REACTIONS (7)
  - Cough [Not Recovered/Not Resolved]
  - Tooth fracture [Unknown]
  - Loose tooth [Unknown]
  - Drug ineffective [Not Recovered/Not Resolved]
  - Muscular dystrophy [Unknown]
  - Product use in unapproved indication [Unknown]
  - Off label use [Recovered/Resolved]

NARRATIVE: CASE EVENT DATE: 20210303
